FAERS Safety Report 5062561-1 (Version None)
Quarter: 2006Q3

REPORT INFORMATION
  Report Type: 
  Country: None (occurrence: None)
  Receive Date: 20060721
  Receipt Date: 20060711
  Transmission Date: 20061208
  Serious: Yes (Hospitalization)
  Sender: FDA-Public Use
  Company Number: 2006080780

PATIENT
  Age: 29 Year
  Sex: Male
  Weight: 72.5755 kg

DRUGS (2)
  1. BENYLIN 1 ALL-IN-ONE COLD AND FLU DAY (PARACETAMOL, PSEUDOEPHEDRINE, P [Suspect]
     Indication: SINUS DISORDER
     Dosage: ORAL
     Route: 048
     Dates: start: 20060626, end: 20060626
  2. BENYLIN ALL IN ONE COLD/FLU NIGHT (DIPHENHYDRAMINE, PARACETAMOL, PSEUD [Suspect]
     Indication: SINUS DISORDER
     Dosage: ORAL
     Route: 048
     Dates: start: 20060626, end: 20060626

REACTIONS (11)
  - BLOOD PHOSPHORUS DECREASED [None]
  - CHILLS [None]
  - COUGH [None]
  - DYSPNOEA [None]
  - FALL [None]
  - HEART RATE DECREASED [None]
  - HYPERHIDROSIS [None]
  - LABORATORY TEST ABNORMAL [None]
  - MALAISE [None]
  - NAUSEA [None]
  - PALPITATIONS [None]
